FAERS Safety Report 18217042 (Version 1)
Quarter: 2020Q3

REPORT INFORMATION
  Report Type: Spontaneous
  Country: US (occurrence: US)
  Receive Date: 20200831
  Receipt Date: 20200831
  Transmission Date: 20201103
  Serious: Yes (Other)
  Sender: FDA-Public Use
  Company Number: None

PATIENT
  Age: 71 Year
  Sex: Male
  Weight: 93.8 kg

DRUGS (15)
  1. DILTIAZEM 10MG IV [Concomitant]
     Dates: start: 20200825, end: 20200829
  2. AZITHROMYCIN 500MG IV [Concomitant]
     Active Substance: AZITHROMYCIN ANHYDROUS
     Dates: start: 20200825, end: 20200825
  3. AMIODARONE 360MG/200ML [Concomitant]
     Dates: start: 20200829, end: 20200831
  4. FENTANYL 50MCG IV [Concomitant]
     Dates: start: 20200829
  5. REMDESIVIR. [Suspect]
     Active Substance: REMDESIVIR
     Indication: COVID-19
     Route: 042
     Dates: start: 20200827, end: 20200830
  6. NOREPINEPHRINE 8MG/250ML [Concomitant]
     Dates: start: 20200825, end: 20200826
  7. POTASSIUM CHLORIDE 10MEQ [Concomitant]
     Active Substance: POTASSIUM CHLORIDE
     Dates: start: 20200826, end: 20200826
  8. PROPOFOL IV [Concomitant]
     Active Substance: PROPOFOL
     Dates: start: 20200829
  9. UNASYN 3G ONCE [Concomitant]
     Dates: start: 20200825, end: 20200825
  10. MAGNESIUM SULFATE 2G [Concomitant]
     Dates: start: 20200826, end: 20200826
  11. ROCEPHIN 2G IV DAILY [Concomitant]
     Dates: start: 20200826, end: 20200828
  12. FAMOTIDINE 20MG IV Q12HRS [Concomitant]
     Dates: start: 20200829, end: 20200830
  13. ZOFRAN IV 4MG [Concomitant]
     Dates: start: 20200825
  14. LOVENOX [Concomitant]
     Active Substance: ENOXAPARIN SODIUM
     Dates: start: 20200826, end: 20200826
  15. ROCURONIUM 100MG IV ONCE [Concomitant]
     Dates: start: 20200829, end: 20200829

REACTIONS (1)
  - Glomerular filtration rate decreased [None]

NARRATIVE: CASE EVENT DATE: 20200831
